FAERS Safety Report 8457301-X (Version None)
Quarter: 2012Q2

REPORT INFORMATION
  Report Type: 
  Country: None (occurrence: None)
  Receive Date: 20120621
  Receipt Date: 20120618
  Transmission Date: 20120825
  Serious: Yes (Death)
  Sender: FDA-Public Use
  Company Number: US-ELI_LILLY_AND_COMPANY-US201206000793

PATIENT
  Sex: Male
  Weight: 88 kg

DRUGS (4)
  1. ALIMTA [Suspect]
     Indication: NON-SMALL CELL LUNG CANCER STAGE IIIB
     Dosage: UNK, UNKNOWN
     Route: 042
     Dates: start: 20110618
  2. DEXAMETHASONE [Concomitant]
     Dosage: 4 MG, BID
     Route: 048
     Dates: start: 20110618
  3. FOLIC ACID [Concomitant]
     Dosage: 1 MG, QD
     Dates: start: 20110601
  4. DEXAMETHASONE [Concomitant]
     Dosage: 10 MG, SINGLE
     Route: 042
     Dates: start: 20110618

REACTIONS (1)
  - DEATH [None]
